FAERS Safety Report 20402331 (Version 2)
Quarter: 2022Q1

REPORT INFORMATION
  Report Type: Spontaneous
  Country: US (occurrence: US)
  Receive Date: 20220131
  Receipt Date: 20220201
  Transmission Date: 20220423
  Serious: No
  Sender: FDA-Public Use
  Company Number: US-ABBVIE-21K-163-4088616-00

PATIENT
  Age: 50 Year
  Sex: Female
  Weight: 95.340 kg

DRUGS (3)
  1. HUMIRA [Suspect]
     Active Substance: ADALIMUMAB
     Indication: Hidradenitis
     Route: 058
     Dates: start: 2017, end: 2017
  2. HUMIRA [Suspect]
     Active Substance: ADALIMUMAB
     Route: 058
     Dates: start: 2018, end: 20210904
  3. OTEZLA [Concomitant]
     Active Substance: APREMILAST
     Indication: Hidradenitis

REACTIONS (2)
  - Hyperhidrosis [Not Recovered/Not Resolved]
  - Groin infection [Recovered/Resolved]

NARRATIVE: CASE EVENT DATE: 20210909
